FAERS Safety Report 24005392 (Version 3)
Quarter: 2025Q4

REPORT INFORMATION
  Report Type: Spontaneous
  Country: CA (occurrence: CA)
  Receive Date: 20240624
  Receipt Date: 20251021
  Transmission Date: 20260117
  Serious: Yes (Other)
  Sender: PFIZER
  Company Number: CA-PFIZER INC-202400196332

PATIENT
  Age: 64 Year
  Sex: Female

DRUGS (2)
  1. RUXIENCE [Suspect]
     Active Substance: RITUXIMAB-PVVR
     Indication: Granulomatosis with polyangiitis
     Dosage: 500 MG, EVERY 6 MONTH
     Route: 042
     Dates: start: 202308, end: 202308
  2. RUXIENCE [Suspect]
     Active Substance: RITUXIMAB-PVVR
     Dosage: 500 MG, EVERY 4 MONTH
     Route: 042
     Dates: start: 20240122

REACTIONS (6)
  - Pneumonia [Unknown]
  - Renal impairment [Recovering/Resolving]
  - Anti-neutrophil cytoplasmic antibody positive vasculitis [Unknown]
  - Disease progression [Unknown]
  - Proteinuria [Recovering/Resolving]
  - Haematuria [Unknown]

NARRATIVE: CASE EVENT DATE: 20230101
